FAERS Safety Report 6908248-9 (Version None)
Quarter: 2010Q3

REPORT INFORMATION
  Report Type: 
  Country: None (occurrence: None)
  Receive Date: 20100803
  Receipt Date: 20100727
  Transmission Date: 20110219
  Serious: Yes (Hospitalization, Other)
  Sender: FDA-Public Use
  Company Number: 007631

PATIENT
  Sex: Female

DRUGS (5)
  1. KEPPRA [Suspect]
     Indication: EPILEPSY
     Dosage: (1000 DAILY DOSE)
     Dates: end: 20091101
  2. KEPPRA [Suspect]
     Indication: EPILEPSY
     Dosage: (1500 MG)
     Dates: start: 20091101
  3. FOLIC ACID [Concomitant]
  4. PRENATAL VITAMINS /01549301/ [Concomitant]
  5. FERROUS SULPHATE /00023503/ [Concomitant]

REACTIONS (7)
  - BLOOD IRON DECREASED [None]
  - CAESAREAN SECTION [None]
  - GESTATIONAL HYPERTENSION [None]
  - HAEMATOCRIT DECREASED [None]
  - HAEMOGLOBIN DECREASED [None]
  - PREGNANCY [None]
  - RED BLOOD CELL COUNT DECREASED [None]
